FAERS Safety Report 14144841 (Version 2)
Quarter: 2017Q4

REPORT INFORMATION
  Report Type: Spontaneous
  Country: US (occurrence: US)
  Receive Date: 20171031
  Receipt Date: 20171107
  Transmission Date: 20180321
  Serious: Yes (Other)
  Sender: FDA-Public Use
  Company Number: US-LPDUSPRD-20171462

PATIENT
  Age: 53 Year
  Sex: Female

DRUGS (1)
  1. INJECTAFER [Suspect]
     Active Substance: FERRIC CARBOXYMALTOSE
     Dosage: 750 MG
     Route: 042
     Dates: start: 20171013, end: 20171013

REACTIONS (5)
  - Pharyngeal oedema [Unknown]
  - Dysphagia [Unknown]
  - Anxiety [Unknown]
  - Throat tightness [Unknown]
  - Dizziness [Unknown]

NARRATIVE: CASE EVENT DATE: 20171013
